FAERS Safety Report 9911803 (Version 1)
Quarter: 2014Q1

REPORT INFORMATION
  Report Type: Spontaneous
  Country: US (occurrence: US)
  Receive Date: 20140219
  Receipt Date: 20140219
  Transmission Date: 20141002
  Serious: No
  Sender: FDA-Public Use
  Company Number: US-MYLANLABS-2013S1001879

PATIENT
  Sex: Male

DRUGS (1)
  1. EPIPEN [Suspect]
     Indication: HYPERSENSITIVITY

REACTIONS (5)
  - Accidental exposure to product [Recovered/Resolved]
  - Expired drug administered [Recovered/Resolved]
  - Palpitations [Not Recovered/Not Resolved]
  - Hypoaesthesia [Not Recovered/Not Resolved]
  - Peripheral coldness [Not Recovered/Not Resolved]
